FAERS Safety Report 11247794 (Version 1)
Quarter: 2015Q3

REPORT INFORMATION
  Report Type: Spontaneous
  Country: US (occurrence: US)
  Receive Date: 20150708
  Receipt Date: 20150708
  Transmission Date: 20151125
  Serious: No
  Sender: FDA-Public Use
  Company Number: US-DSJP-DSU-2015-115390

PATIENT
  Age: 17 Year
  Sex: Female
  Weight: 59.86 kg

DRUGS (1)
  1. WELCHOL [Suspect]
     Active Substance: COLESEVELAM HYDROCHLORIDE
     Indication: GALLBLADDER DISORDER
     Dosage: 1875 MG, QD
     Route: 048
     Dates: start: 201504, end: 201505

REACTIONS (2)
  - No adverse event [Recovered/Resolved]
  - Off label use [Recovered/Resolved]

NARRATIVE: CASE EVENT DATE: 201504
